FAERS Safety Report 7691884-2 (Version None)
Quarter: 2011Q3

REPORT INFORMATION
  Report Type: 
  Country: None (occurrence: None)
  Receive Date: 20110818
  Receipt Date: 20110809
  Transmission Date: 20111222
  Serious: Yes (Hospitalization)
  Sender: FDA-Public Use
  Company Number: US-ASTRAZENECA-2011SE48241

PATIENT
  Age: 62 Year
  Sex: Female

DRUGS (1)
  1. SEROQUEL XR [Suspect]
     Indication: SLEEP DISORDER
     Route: 048

REACTIONS (5)
  - RENAL FAILURE [None]
  - CARDIAC PACEMAKER INSERTION [None]
  - RENAL SURGERY [None]
  - FOOT FRACTURE [None]
  - CARDIAC DISORDER [None]
